FAERS Safety Report 4302594-3 (Version None)
Quarter: 2004Q1

REPORT INFORMATION
  Report Type: 
  Country: None (occurrence: None)
  Receive Date: 20040218
  Receipt Date: 20030904
  Transmission Date: 20041129
  Serious: Yes (Hospitalization)
  Sender: FDA-Public Use
  Company Number: 8003891

PATIENT
  Age: 38 Year
  Sex: Male
  Weight: 79.5 kg

DRUGS (2)
  1. KEPPRA [Suspect]
     Indication: CONVULSION
     Dosage: PO
     Route: 048
     Dates: end: 20030101
  2. KEPPRA [Suspect]
     Indication: CONVULSION
     Dosage: 3000 MG PO
     Route: 048
     Dates: start: 20030101, end: 20030828

REACTIONS (1)
  - PSYCHOTIC DISORDER [None]
